FAERS Safety Report 16805072 (Version 1)
Quarter: 2019Q3

REPORT INFORMATION
  Report Type: Spontaneous
  Country: US (occurrence: US)
  Receive Date: 20190913
  Receipt Date: 20190913
  Transmission Date: 20191005
  Serious: No
  Sender: FDA-Public Use
  Company Number: US-ASTRAZENECA-2019SF17278

PATIENT
  Sex: Female

DRUGS (3)
  1. FASLODEX [Suspect]
     Active Substance: FULVESTRANT
     Route: 030
  2. XGEVA [Concomitant]
     Active Substance: DENOSUMAB
  3. IBRANCE [Suspect]
     Active Substance: PALBOCICLIB
     Indication: BREAST CANCER
     Route: 048
     Dates: start: 20190710

REACTIONS (17)
  - Dry mouth [Unknown]
  - Full blood count decreased [Unknown]
  - Fatigue [Unknown]
  - Asthenia [Unknown]
  - Constipation [Unknown]
  - Alopecia [Unknown]
  - Muscle spasms [Unknown]
  - Hypoaesthesia [Unknown]
  - Dry throat [Unknown]
  - Musculoskeletal chest pain [Unknown]
  - Faeces soft [Unknown]
  - Dyspnoea exertional [Unknown]
  - Abdominal pain upper [Unknown]
  - Dyspepsia [Unknown]
  - Pain [Unknown]
  - Paraesthesia [Unknown]
  - Stomatitis [Unknown]
